FAERS Safety Report 4557738-5 (Version None)
Quarter: 2005Q1

REPORT INFORMATION
  Report Type: 
  Country: None (occurrence: None)
  Receive Date: 20050103
  Receipt Date: 20040804
  Transmission Date: 20050727
  Serious: Yes (Other)
  Sender: FDA-Public Use
  Company Number: 2004UW16517

PATIENT
  Age: 62 Year
  Sex: Male
  Weight: 90.2658 kg

DRUGS (3)
  1. CRESTOR [Suspect]
     Indication: BLOOD CHOLESTEROL INCREASED
     Dosage: 10 MG DAILY PO
     Route: 048
     Dates: start: 20030901, end: 20040201
  2. ALLEGRA [Concomitant]
  3. MULTI-VITAMIN [Concomitant]

REACTIONS (3)
  - MALAISE [None]
  - MYALGIA [None]
  - PYREXIA [None]
